FAERS Safety Report 8062193-7 (Version None)
Quarter: 2012Q1

REPORT INFORMATION
  Report Type: 
  Country: None (occurrence: None)
  Receive Date: 20120123
  Receipt Date: 20120111
  Transmission Date: 20120608
  Serious: Yes (Hospitalization)
  Sender: FDA-Public Use
  Company Number: US-BRISTOL-MYERS SQUIBB COMPANY-16346538

PATIENT
  Age: 63 Year
  Sex: Male

DRUGS (3)
  1. KOMBIGLYZE XR [Suspect]
     Dosage: 1DF=5/500 UNITS NOS.
  2. OMEPRAZOLE [Suspect]
  3. METFORMIN HCL [Suspect]

REACTIONS (4)
  - PALLOR [None]
  - PANCYTOPENIA [None]
  - VITAMIN B12 DEFICIENCY [None]
  - DYSPNOEA [None]
